FAERS Safety Report 11737179 (Version 1)
Quarter: 2015Q4

REPORT INFORMATION
  Report Type: Spontaneous
  Country: US (occurrence: US)
  Receive Date: 20151113
  Receipt Date: 20151113
  Transmission Date: 20160304
  Serious: Yes (Hospitalization, Other)
  Sender: FDA-Public Use
  Company Number: US-ELI_LILLY_AND_COMPANY-US201511001477

PATIENT
  Age: 54 Year
  Sex: Male

DRUGS (1)
  1. EFFIENT [Suspect]
     Active Substance: PRASUGREL HYDROCHLORIDE
     Indication: STENT PLACEMENT
     Dosage: 10 MG, UNKNOWN
     Route: 065
     Dates: start: 201509

REACTIONS (5)
  - Abdominal infection [Unknown]
  - Diverticulum intestinal haemorrhagic [Unknown]
  - Surgical failure [Not Recovered/Not Resolved]
  - Diverticular perforation [Not Recovered/Not Resolved]
  - Diverticulum [Unknown]

NARRATIVE: CASE EVENT DATE: 201510
